FAERS Safety Report 6594521-3 (Version None)
Quarter: 2010Q1

REPORT INFORMATION
  Report Type: 
  Country: None (occurrence: None)
  Receive Date: 20100222
  Receipt Date: 20100212
  Transmission Date: 20100710
  Serious: Yes (Hospitalization)
  Sender: FDA-Public Use
  Company Number: FR-ABBOTT-09P-056-0601051-03

PATIENT
  Sex: Female
  Weight: 70 kg

DRUGS (14)
  1. HUMIRA [Suspect]
     Indication: CROHN'S DISEASE
     Route: 058
     Dates: start: 20080615, end: 20090307
  2. HUMIRA [Suspect]
     Dates: end: 20090430
  3. NORDETTE-21 [Concomitant]
     Indication: ORAL CONTRACEPTION
     Dosage: 1 CP DAILY
     Dates: start: 20070305
  4. IMODIUM [Concomitant]
     Indication: DIARRHOEA
     Dosage: 6 CP DAILY
     Dates: start: 20061221
  5. LEXOMIL [Concomitant]
     Indication: ANXIETY
     Dates: start: 20080201
  6. DEROXAT [Concomitant]
     Indication: DEPRESSION
     Dates: start: 20080613
  7. SMECTA [Concomitant]
     Indication: GASTRITIS
     Dates: start: 20061221
  8. OROCAL D3 [Concomitant]
     Indication: MINERAL SUPPLEMENTATION
     Dates: start: 20080929
  9. OROCAL D3 [Concomitant]
     Indication: VITAMIN SUPPLEMENTATION
  10. ACUPAN [Concomitant]
     Indication: ABDOMINAL PAIN
     Dates: start: 20081210, end: 20081218
  11. REMICADE [Concomitant]
     Indication: CROHN'S DISEASE
     Route: 050
     Dates: start: 20090515, end: 20090515
  12. REMICADE [Concomitant]
     Route: 050
     Dates: start: 20090602, end: 20090602
  13. CIMZIA [Concomitant]
     Indication: CROHN'S DISEASE
     Dates: start: 20090707
  14. MESALAZINE [Concomitant]
     Indication: CROHN'S DISEASE
     Dates: start: 20090829, end: 20091101

REACTIONS (1)
  - SMALL INTESTINAL STENOSIS [None]
